FAERS Safety Report 23173052 (Version 1)
Quarter: 2023Q4

REPORT INFORMATION
  Report Type: Spontaneous
  Country: FR (occurrence: FR)
  Receive Date: 20231110
  Receipt Date: 20231110
  Transmission Date: 20240110
  Serious: Yes (Hospitalization, Other)
  Sender: FDA-Public Use
  Company Number: None

PATIENT
  Age: 66 Year
  Sex: Male
  Weight: 89.6 kg

DRUGS (2)
  1. PLAVIX [Suspect]
     Active Substance: CLOPIDOGREL BISULFATE
     Indication: Thrombosis prophylaxis
     Dosage: 1 DF
     Route: 048
     Dates: start: 20231010, end: 20231010
  2. PERINDOPRIL ARGININE [Concomitant]
     Active Substance: PERINDOPRIL ARGININE
     Indication: Hypertension
     Dosage: 1 DF, QD
     Route: 048

REACTIONS (3)
  - Brain herniation [Not Recovered/Not Resolved]
  - Cerebral mass effect [Not Recovered/Not Resolved]
  - Haemorrhagic stroke [Not Recovered/Not Resolved]

NARRATIVE: CASE EVENT DATE: 20231010
